FAERS Safety Report 4642914-3 (Version None)
Quarter: 2005Q2

REPORT INFORMATION
  Report Type: 
  Country: None (occurrence: None)
  Receive Date: 20050421
  Receipt Date: 20011210
  Transmission Date: 20051028
  Serious: Yes (Hospitalization)
  Sender: FDA-Public Use
  Company Number: 3164

PATIENT
  Age: 22 Year
  Sex: Female

DRUGS (6)
  1. METHOTREXATE [Suspect]
     Indication: ACUTE LYMPHOCYTIC LEUKAEMIA
     Dosage: 62.5 MG TOTAL IT
  2. AMPHOTERICIN B [Concomitant]
  3. FLUCONAZOLE [Concomitant]
  4. IMIPENEM [Concomitant]
  5. VANCOMYCIN [Concomitant]
  6. ACYCLOVIR [Concomitant]

REACTIONS (9)
  - ABNORMAL BEHAVIOUR [None]
  - APHASIA [None]
  - BLOOD MAGNESIUM DECREASED [None]
  - CATHETER BACTERAEMIA [None]
  - DYSPHASIA [None]
  - ELECTROENCEPHALOGRAM ABNORMAL [None]
  - ENCEPHALOPATHY [None]
  - METABOLIC ENCEPHALOPATHY [None]
  - THERAPY NON-RESPONDER [None]
